FAERS Safety Report 6824692-2 (Version None)
Quarter: 2010Q3

REPORT INFORMATION
  Report Type: 
  Country: None (occurrence: None)
  Receive Date: 20100708
  Receipt Date: 20061110
  Transmission Date: 20110219
  Serious: No
  Sender: FDA-Public Use
  Company Number: US-PFIZER INC-2006140159

PATIENT
  Sex: Female
  Weight: 51.71 kg

DRUGS (2)
  1. CHANTIX [Suspect]
     Indication: SMOKING CESSATION THERAPY
     Dates: start: 20061001
  2. MULTI-VITAMINS [Concomitant]

REACTIONS (2)
  - FLATULENCE [None]
  - NAUSEA [None]
